FAERS Safety Report 9297874 (Version 2)
Quarter: 2013Q3

REPORT INFORMATION
  Report Type: Spontaneous
  Country: US (occurrence: US)
  Receive Date: 20130520
  Receipt Date: 20130725
  Transmission Date: 20140515
  Serious: Yes (Other)
  Sender: FDA-Public Use
  Company Number: US-PFIZER INC-2013153290

PATIENT
  Age: 38 Year
  Sex: Male
  Weight: 113.38 kg

DRUGS (3)
  1. LYRICA [Suspect]
     Indication: NEURALGIA
     Dosage: UNK, 1X/DAY
     Route: 048
  2. LYRICA [Suspect]
     Indication: NEURALGIA
  3. CYMBALTA [Concomitant]
     Indication: DEPRESSION
     Dosage: UNK

REACTIONS (1)
  - Fall [Unknown]
